FAERS Safety Report 15466265 (Version 5)
Quarter: 2020Q3

REPORT INFORMATION
  Report Type: Report from Study
  Country: CN (occurrence: CN)
  Receive Date: 20181004
  Receipt Date: 20200127
  Transmission Date: 20201104
  Serious: Yes (Hospitalization, Other)
  Sender: FDA-Public Use
  Company Number: CN-JNJFOC-20180930924

PATIENT
  Age: 24 Year
  Sex: Male
  Weight: 60 kg

DRUGS (17)
  1. VITAMIN B6 [Concomitant]
     Active Substance: PYRIDOXINE HYDROCHLORIDE
     Dosage: GTT
     Route: 065
     Dates: start: 20180720
  2. SIRTURO [Suspect]
     Active Substance: BEDAQUILINE FUMARATE
     Indication: TUBERCULOSIS
     Route: 048
     Dates: start: 20180815, end: 20180829
  3. SIRTURO [Suspect]
     Active Substance: BEDAQUILINE FUMARATE
     Route: 048
     Dates: start: 20180920, end: 20190131
  4. MOXIFLOXACIN. [Suspect]
     Active Substance: MOXIFLOXACIN
     Route: 048
     Dates: start: 20181017, end: 20191209
  5. LINEZOLIDE [Suspect]
     Active Substance: LINEZOLID
     Indication: TUBERCULOSIS
     Dosage: GTT
     Route: 048
     Dates: start: 20190429, end: 20190531
  6. LINEZOLIDE [Suspect]
     Active Substance: LINEZOLID
     Dosage: GTT
     Route: 048
     Dates: start: 20190531
  7. AMIKACIN. [Suspect]
     Active Substance: AMIKACIN
     Indication: TUBERCULOSIS
     Dosage: GTT
     Route: 042
     Dates: start: 20180815, end: 20191209
  8. LINEZOLIDE [Suspect]
     Active Substance: LINEZOLID
     Dosage: GTT
     Route: 048
     Dates: start: 20180815, end: 20190212
  9. CYCLOSERINE. [Suspect]
     Active Substance: CYCLOSERINE
     Indication: TUBERCULOSIS
     Dosage: GTT
     Route: 048
     Dates: start: 20180815, end: 20191209
  10. LINEZOLIDE [Suspect]
     Active Substance: LINEZOLID
     Dosage: GTT
     Route: 048
     Dates: start: 20190212, end: 20190429
  11. CLOFAZIMINE [Suspect]
     Active Substance: CLOFAZIMINE
     Indication: TUBERCULOSIS
     Dosage: GTT
     Route: 048
     Dates: start: 20180815, end: 20180918
  12. CLOFAZIMINE [Suspect]
     Active Substance: CLOFAZIMINE
     Dosage: GTT
     Route: 048
     Dates: start: 20180925, end: 20181016
  13. CLOFAZIMINE [Suspect]
     Active Substance: CLOFAZIMINE
     Dosage: GTT
     Route: 048
     Dates: start: 20181016, end: 20191209
  14. SIRTURO [Suspect]
     Active Substance: BEDAQUILINE FUMARATE
     Route: 048
     Dates: start: 20180829, end: 20180918
  15. MOXIFLOXACIN. [Suspect]
     Active Substance: MOXIFLOXACIN
     Indication: TUBERCULOSIS
     Route: 048
     Dates: start: 20180815, end: 20180918
  16. ENTECAVIR. [Concomitant]
     Active Substance: ENTECAVIR
     Indication: PRODUCT USED FOR UNKNOWN INDICATION
     Dosage: GTT
     Route: 065
     Dates: start: 20180720
  17. ETHAMBUTOL [Suspect]
     Active Substance: ETHAMBUTOL HYDROCHLORIDE
     Indication: TUBERCULOSIS
     Dosage: GTT
     Route: 048
     Dates: start: 20180829, end: 20190212

REACTIONS (2)
  - Hepatotoxicity [Recovering/Resolving]
  - Electrocardiogram QT prolonged [Recovering/Resolving]

NARRATIVE: CASE EVENT DATE: 20180822
